FAERS Safety Report 8959034 (Version 1)
Quarter: 2012Q4

REPORT INFORMATION
  Report Type: Spontaneous
  Country: CH (occurrence: None)
  Receive Date: 20121128
  Receipt Date: 20121128
  Transmission Date: 20130627
  Serious: Yes (Death, Other)
  Sender: FDA-Public Use
  Company Number: FK201203419

PATIENT
  Age: 38 Year
  Sex: Female

DRUGS (1)
  1. HEPARIN SODIUM [Suspect]
     Indication: ANTICOAGULANT THERAPY
     Dosage: Unknown,  Unknown
-  Stopped

REACTIONS (4)
  - Subarachnoid haemorrhage [None]
  - Altered state of consciousness [None]
  - Musculoskeletal stiffness [None]
  - Ruptured cerebral aneurysm [None]
